FAERS Safety Report 10951487 (Version 1)
Quarter: 2015Q1

REPORT INFORMATION
  Report Type: Spontaneous
  Country: AR (occurrence: AR)
  Receive Date: 20150324
  Receipt Date: 20150324
  Transmission Date: 20150721
  Serious: Yes (Life-Threatening, Hospitalization)
  Sender: FDA-Public Use
  Company Number: PHHY2015AR034176

PATIENT
  Age: 44 Year
  Sex: Male

DRUGS (2)
  1. FLUVOXAMINE MALEATE. [Suspect]
     Active Substance: FLUVOXAMINE MALEATE
     Indication: OBSESSIVE-COMPULSIVE DISORDER
     Dosage: 300 MG, QD
     Route: 065
  2. TRILEPTAL [Suspect]
     Active Substance: OXCARBAZEPINE
     Indication: EPILEPSY
     Dosage: 900 MG, QD
     Route: 065

REACTIONS (6)
  - Blood sodium decreased [Recovered/Resolved]
  - Nausea [Recovered/Resolved]
  - Apparent death [Unknown]
  - Headache [Recovered/Resolved]
  - Abdominal pain upper [Recovered/Resolved]
  - Obsessive-compulsive disorder [Unknown]

NARRATIVE: CASE EVENT DATE: 20150303
